FAERS Safety Report 8514692-9 (Version None)
Quarter: 2012Q3

REPORT INFORMATION
  Report Type: 
  Country: None (occurrence: None)
  Receive Date: 20120717
  Receipt Date: 20120705
  Transmission Date: 20120928
  Serious: Yes (Other)
  Sender: FDA-Public Use
  Company Number: US-ACTELION-A-NJ2011-52128

PATIENT

DRUGS (3)
  1. CLOPIDOGREL [Suspect]
  2. TYVASO [Concomitant]
  3. TRACLEER [Suspect]
     Indication: PULMONARY ARTERIAL HYPERTENSION
     Dosage: UNK
     Route: 048

REACTIONS (6)
  - VASCULAR OCCLUSION [None]
  - STENT PLACEMENT [None]
  - HYPERTENSION [None]
  - ABDOMINAL PAIN UPPER [None]
  - DYSPNOEA [None]
  - HYPERHIDROSIS [None]
